FAERS Safety Report 8126440-5 (Version None)
Quarter: 2012Q1

REPORT INFORMATION
  Report Type: 
  Country: None (occurrence: None)
  Receive Date: 20120209
  Receipt Date: 20120123
  Transmission Date: 20120608
  Serious: Yes (Hospitalization, Other)
  Sender: FDA-Public Use
  Company Number: US-PFIZER INC-2011010918

PATIENT
  Sex: Female
  Weight: 11.7 kg

DRUGS (3)
  1. CHILDREN'S MOTRIN [Suspect]
     Indication: DISCOMFORT
  2. CHILDREN'S MOTRIN [Suspect]
     Indication: PYREXIA
     Dosage: UNK
     Route: 048
     Dates: start: 20050520, end: 20050521
  3. ACETAMINOPHEN [Concomitant]
     Indication: PYREXIA

REACTIONS (2)
  - TOXIC EPIDERMAL NECROLYSIS [None]
  - STEVENS-JOHNSON SYNDROME [None]
